FAERS Safety Report 16719816 (Version 1)
Quarter: 2019Q3

REPORT INFORMATION
  Report Type: Spontaneous
  Country: US (occurrence: US)
  Receive Date: 20190820
  Receipt Date: 20190820
  Transmission Date: 20191005
  Serious: No
  Sender: FDA-Public Use
  Company Number: US-SHIRE-US201927010

PATIENT
  Age: 13 Year
  Sex: Male

DRUGS (3)
  1. MYDAYIS [Suspect]
     Active Substance: AMPHETAMINE ASPARTATE\AMPHETAMINE SULFATE\DEXTROAMPHETAMINE SACCHARATE\DEXTROAMPHETAMINE SULFATE
     Indication: AUTISM SPECTRUM DISORDER
     Dosage: 12.5 MILLIGRAM, 2X/DAY:BID
     Route: 065
     Dates: start: 20190729
  2. MYDAYIS [Suspect]
     Active Substance: AMPHETAMINE ASPARTATE\AMPHETAMINE SULFATE\DEXTROAMPHETAMINE SACCHARATE\DEXTROAMPHETAMINE SULFATE
     Indication: ATTENTION DEFICIT/HYPERACTIVITY DISORDER
     Dosage: 12.5 MILLIGRAM, AT 7 AM, 1X/DAY:QD
     Route: 065
  3. MYDAYIS [Suspect]
     Active Substance: AMPHETAMINE ASPARTATE\AMPHETAMINE SULFATE\DEXTROAMPHETAMINE SACCHARATE\DEXTROAMPHETAMINE SULFATE
     Indication: PHELAN-MCDERMID SYNDROME
     Dosage: 25 MILLIGRAM, 1X/DAY:QD
     Route: 065
     Dates: start: 20190810

REACTIONS (3)
  - Psychomotor hyperactivity [Unknown]
  - Nervousness [Unknown]
  - Abnormal behaviour [Unknown]
